FAERS Safety Report 8457159-9 (Version None)
Quarter: 2012Q2

REPORT INFORMATION
  Report Type: 
  Country: None (occurrence: None)
  Receive Date: 20120621
  Receipt Date: 20120612
  Transmission Date: 20120825
  Serious: Yes (Other)
  Sender: FDA-Public Use
  Company Number: DE-TEVA-342150GER

PATIENT
  Sex: Female

DRUGS (5)
  1. DOXORUBICIN HYDROCHLORIDE [Suspect]
     Indication: BREAST CANCER
     Route: 042
     Dates: start: 20120327
  2. CARBOPLATIN [Suspect]
     Indication: BREAST CANCER
     Route: 042
     Dates: start: 20120327
  3. LAPATINIB [Suspect]
     Indication: BREAST CANCER
     Dosage: 750 MILLIGRAM;
     Route: 048
     Dates: start: 20120327, end: 20120605
  4. PACLITAXEL [Suspect]
     Indication: BREAST CANCER
     Route: 042
     Dates: start: 20120327
  5. TRASTUZUMAB [Suspect]
     Indication: BREAST CANCER
     Route: 042
     Dates: start: 20120327

REACTIONS (1)
  - ALANINE AMINOTRANSFERASE INCREASED [None]
